FAERS Safety Report 10901976 (Version 2)
Quarter: 2015Q2

REPORT INFORMATION
  Report Type: Spontaneous
  Country: US (occurrence: US)
  Receive Date: 20150310
  Receipt Date: 20150511
  Transmission Date: 20150821
  Serious: Yes (Other)
  Sender: FDA-Public Use
  Company Number: US-BIOMARINAP-US-2015-105749

PATIENT
  Age: 17 Year
  Sex: Female
  Weight: 80.7 kg

DRUGS (1)
  1. KUVAN [Suspect]
     Active Substance: SAPROPTERIN DIHYDROCHLORIDE
     Indication: PHENYLKETONURIA
     Dosage: 1600 MG, QD
     Route: 048
     Dates: start: 20090109

REACTIONS (2)
  - Depression [Unknown]
  - Irritability [Unknown]

NARRATIVE: CASE EVENT DATE: 20140301
